FAERS Safety Report 5699540-7 (Version None)
Quarter: 2008Q2

REPORT INFORMATION
  Report Type: 
  Country: None (occurrence: None)
  Receive Date: 20080408
  Receipt Date: 20080408
  Transmission Date: 20081010
  Serious: Yes (Death)
  Sender: FDA-Public Use
  Company Number: None

PATIENT
  Age: 3 Year

DRUGS (1)
  1. ARGININE [Suspect]
     Dosage: INJECTABLE

REACTIONS (6)
  - ACCIDENTAL OVERDOSE [None]
  - BRAIN DEATH [None]
  - DISORIENTATION [None]
  - HEADACHE [None]
  - MEDICATION ERROR [None]
  - VOMITING [None]
